FAERS Safety Report 6896761-2 (Version None)
Quarter: 2010Q3

REPORT INFORMATION
  Report Type: 
  Country: None (occurrence: None)
  Receive Date: 20100802
  Receipt Date: 20070123
  Transmission Date: 20110219
  Serious: No
  Sender: FDA-Public Use
  Company Number: US-PFIZER INC-2007006843

PATIENT
  Sex: Female
  Weight: 58.97 kg

DRUGS (7)
  1. LYRICA [Suspect]
     Indication: EPILEPSY
     Dosage: BID:EVERY DAY
     Dates: start: 20061101
  2. DILANTIN [Concomitant]
  3. OXYCODONE [Concomitant]
  4. DIAZEPAM [Concomitant]
  5. MORPHINE SULFATE [Concomitant]
  6. ZANTAC [Concomitant]
  7. POTASSIUM [Concomitant]

REACTIONS (1)
  - ALOPECIA [None]
